FAERS Safety Report 9999707 (Version 1)
Quarter: 2014Q1

REPORT INFORMATION
  Report Type: Spontaneous
  Country: US (occurrence: US)
  Receive Date: 20140312
  Receipt Date: 20140312
  Transmission Date: 20141002
  Serious: Yes (Other)
  Sender: FDA-Public Use
  Company Number: US-ASTRAZENECA-2014SE16234

PATIENT
  Age: 83 Year
  Sex: Female

DRUGS (11)
  1. ATENOLOL [Suspect]
     Indication: HYPERTENSION
     Route: 048
     Dates: start: 2009
  2. LISINOPRIL [Suspect]
     Indication: HYPERTENSION
     Route: 048
     Dates: start: 2013
  3. OMEPRAZOLE [Suspect]
     Indication: GASTRIC POLYPS
     Route: 048
  4. OMEPRAZOLE [Suspect]
     Indication: GASTROOESOPHAGEAL REFLUX DISEASE
     Route: 048
  5. CRESTOR [Suspect]
     Indication: BLOOD CHOLESTEROL INCREASED
     Route: 048
     Dates: end: 201401
  6. SYNTHROID [Concomitant]
     Indication: THYROID DISORDER
     Route: 048
  7. WARFARIN [Concomitant]
     Indication: DEEP VEIN THROMBOSIS
     Dosage: VARIES 3 DAYS A WEEK 7.5 MG AND 4 DAYS A WEEK 5 MG, DAILY
     Route: 048
     Dates: start: 2011
  8. GABAPENTIN [Concomitant]
     Indication: NEUROPATHY PERIPHERAL
     Route: 048
     Dates: start: 2009
  9. COQ10 [Concomitant]
     Route: 048
     Dates: start: 2012
  10. CALCIUM WITH VITAMIN D [Concomitant]
     Route: 048
  11. CITRACAL [Concomitant]
     Route: 048

REACTIONS (4)
  - Deep vein thrombosis [Unknown]
  - Breast cancer [Unknown]
  - Neuropathy peripheral [Not Recovered/Not Resolved]
  - Balance disorder [Unknown]
